FAERS Safety Report 16706004 (Version 7)
Quarter: 2023Q2

REPORT INFORMATION
  Report Type: Spontaneous
  Country: US (occurrence: US)
  Receive Date: 20190815
  Receipt Date: 20230413
  Transmission Date: 20230722
  Serious: Yes (Other)
  Sender: FDA-Public Use
  Company Number: US-JNJFOC-20190815969

PATIENT
  Sex: Male

DRUGS (1)
  1. RISPERDAL [Suspect]
     Active Substance: RISPERIDONE
     Indication: Product used for unknown indication
     Route: 048

REACTIONS (9)
  - Cellulitis [Unknown]
  - Hallucination, auditory [Unknown]
  - Urinary tract infection [Unknown]
  - Abnormal behaviour [Unknown]
  - Wound [Unknown]
  - Gynaecomastia [Unknown]
  - Localised infection [Unknown]
  - Influenza [Unknown]
  - Ear infection [Unknown]

NARRATIVE: CASE EVENT DATE: 20190201
